FAERS Safety Report 6136559-6 (Version None)
Quarter: 2009Q1

REPORT INFORMATION
  Report Type: 
  Country: None (occurrence: None)
  Receive Date: 20090330
  Receipt Date: 20090317
  Transmission Date: 20090719
  Serious: Yes (Life-Threatening, Hospitalization, Other)
  Sender: FDA-Public Use
  Company Number: GB-PFIZER INC-2009166714

PATIENT

DRUGS (2)
  1. SERTRALINE HCL [Suspect]
     Dosage: 3.1 G, UNK
     Route: 048
  2. QUETIAPINE FUMARATE [Suspect]
     Dosage: 4.3 G, UNK
     Route: 048

REACTIONS (5)
  - COMA [None]
  - DEPRESSED LEVEL OF CONSCIOUSNESS [None]
  - HYPOTENSION [None]
  - HYPOTHERMIA [None]
  - OVERDOSE [None]
